FAERS Safety Report 5831611-4 (Version None)
Quarter: 2008Q3

REPORT INFORMATION
  Report Type: 
  Country: None (occurrence: None)
  Receive Date: 20080801
  Receipt Date: 20080724
  Transmission Date: 20090109
  Serious: Yes (Hospitalization, Other)
  Sender: FDA-Public Use
  Company Number: US-PFIZER INC-2008062308

PATIENT
  Sex: Female
  Weight: 79.545 kg

DRUGS (5)
  1. CHANTIX [Suspect]
     Indication: SMOKING CESSATION THERAPY
     Dates: start: 20080701, end: 20080701
  2. EFFEXOR [Concomitant]
  3. TRAZODONE HCL [Concomitant]
  4. DEPAKOTE [Concomitant]
  5. RISPERDAL [Concomitant]

REACTIONS (2)
  - CONVERSION DISORDER [None]
  - DEPRESSION [None]
